FAERS Safety Report 21277599 (Version 1)
Quarter: 2022Q3

REPORT INFORMATION
  Report Type: Spontaneous
  Country: US (occurrence: US)
  Receive Date: 20220831
  Receipt Date: 20220831
  Transmission Date: 20221027
  Serious: No
  Sender: FDA-Public Use
  Company Number: US-ABBVIE-22K-163-4293909-00

PATIENT
  Age: 66 Year
  Sex: Female
  Weight: 86.260 kg

DRUGS (18)
  1. HUMIRA [Suspect]
     Active Substance: ADALIMUMAB
     Indication: Skin ulcer
     Route: 058
     Dates: start: 202108, end: 202109
  2. HUMIRA [Suspect]
     Active Substance: ADALIMUMAB
     Indication: Eye ulcer
     Route: 058
     Dates: start: 202109
  3. HUMIRA [Suspect]
     Active Substance: ADALIMUMAB
     Indication: Genital ulceration
  4. HUMIRA [Suspect]
     Active Substance: ADALIMUMAB
     Indication: Psoriasis
  5. HUMIRA [Suspect]
     Active Substance: ADALIMUMAB
     Indication: Psoriatic arthropathy
  6. MODERNA COVID-19 VACCINE [Concomitant]
     Active Substance: ELASOMERAN
     Indication: COVID-19 immunisation
     Dosage: FIRST DOSE
     Route: 030
     Dates: start: 202104, end: 202104
  7. MODERNA COVID-19 VACCINE [Concomitant]
     Active Substance: ELASOMERAN
     Dosage: SECOND DOSE
     Route: 030
  8. METHOTREXATE [Concomitant]
     Active Substance: METHOTREXATE
     Indication: Skin ulcer
  9. METHOTREXATE [Concomitant]
     Active Substance: METHOTREXATE
     Indication: Eye ulcer
  10. METHOTREXATE [Concomitant]
     Active Substance: METHOTREXATE
     Indication: Genital ulceration
  11. XARELTO [Concomitant]
     Active Substance: RIVAROXABAN
     Indication: Thrombosis
  12. XARELTO [Concomitant]
     Active Substance: RIVAROXABAN
     Indication: Coagulation factor V level
  13. ATOGEPANT [Concomitant]
     Active Substance: ATOGEPANT
     Indication: Headache
  14. SINGULAIR [Concomitant]
     Active Substance: MONTELUKAST SODIUM
     Indication: Hypersensitivity
  15. LEVOXYL [Concomitant]
     Active Substance: LEVOTHYROXINE SODIUM
     Indication: Thyroid disorder
  16. HYDROXYZINE [Concomitant]
     Active Substance: HYDROXYZINE HYDROCHLORIDE
     Indication: Pruritus
  17. LYRICA [Concomitant]
     Active Substance: PREGABALIN
     Indication: Craniocerebral injury
  18. VITAMIN B [Concomitant]
     Active Substance: VITAMIN B
     Indication: Product used for unknown indication

REACTIONS (7)
  - Off label use [Unknown]
  - Wrong technique in product usage process [Recovered/Resolved]
  - Device issue [Recovered/Resolved]
  - Injection site mass [Recovered/Resolved]
  - Injection site rash [Not Recovered/Not Resolved]
  - Injection site pruritus [Not Recovered/Not Resolved]
  - Injection site pain [Not Recovered/Not Resolved]

NARRATIVE: CASE EVENT DATE: 20220225
